FAERS Safety Report 13358766 (Version 1)
Quarter: 2017Q1

REPORT INFORMATION
  Report Type: Spontaneous
  Country: KR (occurrence: KR)
  Receive Date: 20170322
  Receipt Date: 20170322
  Transmission Date: 20170429
  Serious: Yes (Hospitalization, Other)
  Sender: FDA-Public Use
  Company Number: KR-009507513-1703KOR008857

PATIENT
  Age: 69 Year
  Sex: Male
  Weight: 55.5 kg

DRUGS (31)
  1. CISPLAN [Concomitant]
     Active Substance: CISPLATIN
     Dosage: 97.2 MG, QD
     Dates: start: 20161123, end: 20161123
  2. CISPLAN [Concomitant]
     Active Substance: CISPLATIN
     Dosage: 97.778 MG, QD
     Dates: start: 20170125, end: 20170208
  3. DEXAMETHASONE. [Concomitant]
     Active Substance: DEXAMETHASONE
     Dosage: 8 MG, QD
     Route: 048
     Dates: start: 20161216, end: 20161218
  4. ALOXI [Concomitant]
     Active Substance: PALONOSETRON HYDROCHLORIDE
     Dosage: 0.25 MG, QD
     Dates: start: 20161123, end: 20161123
  5. TS-1 [Concomitant]
     Active Substance: GIMERACIL\OTERACIL\TEGAFUR
     Dosage: 3 CAPSULES, BID
     Route: 048
     Dates: start: 20161123, end: 20161207
  6. ALOXI [Concomitant]
     Active Substance: PALONOSETRON HYDROCHLORIDE
     Dosage: 0.25 MG, QD
     Dates: start: 20161215, end: 20161215
  7. TS-1 [Concomitant]
     Active Substance: GIMERACIL\OTERACIL\TEGAFUR
     Dosage: 3 CAPSULES, BID
     Route: 048
     Dates: start: 20170125, end: 20170125
  8. DEXAMETHASONE. [Concomitant]
     Active Substance: DEXAMETHASONE
     Dosage: 8 MG, QD
     Route: 048
     Dates: start: 20170105, end: 20170107
  9. CISPLAN [Concomitant]
     Active Substance: CISPLATIN
     Dosage: 97.2 MG, QD
     Dates: start: 20161103, end: 20161103
  10. CISPLAN [Concomitant]
     Active Substance: CISPLATIN
     Dosage: 95.748 MG, QD
     Dates: start: 20170104, end: 20170104
  11. DEXAMETHASONE. [Concomitant]
     Active Substance: DEXAMETHASONE
     Dosage: 12 MG, QD
     Dates: start: 20170125, end: 20170125
  12. EMEND (FOSAPREPITANT DIMEGLUMINE) [Suspect]
     Active Substance: FOSAPREPITANT DIMEGLUMINE
     Indication: PROPHYLAXIS OF NAUSEA AND VOMITING
     Dosage: 150 MG, ONCE
     Route: 042
     Dates: start: 20161014, end: 20161014
  13. TS-1 [Concomitant]
     Active Substance: GIMERACIL\OTERACIL\TEGAFUR
     Indication: GASTRIC CANCER
     Dosage: 3 CAPSULES, BID
     Route: 048
     Dates: start: 20161014, end: 20161028
  14. CISPLAN [Concomitant]
     Active Substance: CISPLATIN
     Dosage: 97.2 MG, QD
     Dates: start: 20161215, end: 20161215
  15. DEXAMETHASONE. [Concomitant]
     Active Substance: DEXAMETHASONE
     Indication: PROPHYLAXIS OF NAUSEA AND VOMITING
     Dosage: 12 MG, QD
     Dates: start: 20161014, end: 20161014
  16. DEXAMETHASONE. [Concomitant]
     Active Substance: DEXAMETHASONE
     Indication: PROPHYLAXIS OF NAUSEA AND VOMITING
     Dosage: 8 MG, QD
     Route: 048
     Dates: start: 20161015, end: 20161017
  17. ALOXI [Concomitant]
     Active Substance: PALONOSETRON HYDROCHLORIDE
     Dosage: 0.25 MG, QD
     Dates: start: 20170104, end: 20170104
  18. CISPLAN [Concomitant]
     Active Substance: CISPLATIN
     Indication: GASTRIC CANCER
     Dosage: 97.2 MG, QD
     Dates: start: 20161014, end: 20161014
  19. DEXAMETHASONE. [Concomitant]
     Active Substance: DEXAMETHASONE
     Dosage: 12 MG, QD
     Dates: start: 20161103, end: 20161103
  20. DEXAMETHASONE. [Concomitant]
     Active Substance: DEXAMETHASONE
     Dosage: 12 MG, QD
     Dates: start: 20161123, end: 20161123
  21. DEXAMETHASONE. [Concomitant]
     Active Substance: DEXAMETHASONE
     Dosage: 12 MG, QD
     Dates: start: 20161215, end: 20161215
  22. DEXAMETHASONE. [Concomitant]
     Active Substance: DEXAMETHASONE
     Dosage: 8 MG, QD
     Route: 048
     Dates: start: 20170126, end: 20170128
  23. TS-1 [Concomitant]
     Active Substance: GIMERACIL\OTERACIL\TEGAFUR
     Dosage: 3 CAPSULES, BID
     Route: 048
     Dates: start: 20161103, end: 20161117
  24. TS-1 [Concomitant]
     Active Substance: GIMERACIL\OTERACIL\TEGAFUR
     Dosage: 3 CAPSULES, BID
     Route: 048
     Dates: start: 20161215, end: 20161229
  25. TS-1 [Concomitant]
     Active Substance: GIMERACIL\OTERACIL\TEGAFUR
     Dosage: 3 CAPSULES, BID
     Route: 048
     Dates: start: 20170104, end: 20170118
  26. DEXAMETHASONE. [Concomitant]
     Active Substance: DEXAMETHASONE
     Dosage: 12 MG, QD
     Dates: start: 20160104, end: 20170104
  27. DEXAMETHASONE. [Concomitant]
     Active Substance: DEXAMETHASONE
     Dosage: 8 MG, QD
     Route: 048
     Dates: start: 20161104, end: 20161106
  28. ALOXI [Concomitant]
     Active Substance: PALONOSETRON HYDROCHLORIDE
     Indication: PROPHYLAXIS OF NAUSEA AND VOMITING
     Dosage: 0.25 MG, QD
     Dates: start: 20161014, end: 20161014
  29. ALOXI [Concomitant]
     Active Substance: PALONOSETRON HYDROCHLORIDE
     Dosage: 0.25 MG, QD
     Dates: start: 20161103, end: 20161103
  30. ALOXI [Concomitant]
     Active Substance: PALONOSETRON HYDROCHLORIDE
     Dosage: 0.25 MG, QD
     Dates: start: 20170125, end: 20170125
  31. DEXAMETHASONE. [Concomitant]
     Active Substance: DEXAMETHASONE
     Dosage: 8 MG, QD
     Route: 048
     Dates: start: 20161124, end: 20161126

REACTIONS (2)
  - Small intestinal obstruction [Recovered/Resolved]
  - Adenocarcinoma [Recovered/Resolved]

NARRATIVE: CASE EVENT DATE: 20170122
